FAERS Safety Report 6296921-8 (Version None)
Quarter: 2009Q3

REPORT INFORMATION
  Report Type: 
  Country: None (occurrence: None)
  Receive Date: 20090804
  Receipt Date: 20090803
  Transmission Date: 20100115
  Serious: Yes (Hospitalization)
  Sender: FDA-Public Use
  Company Number: US-B.I. PHARMACEUTICALS,INC./RIDGEFIELD-2009-BP-09092BP

PATIENT
  Sex: Male
  Weight: 7.5 kg

DRUGS (5)
  1. ATROVENT [Suspect]
     Indication: DYSPNOEA
     Dates: start: 20090731, end: 20090731
  2. BETHANECHOL [Suspect]
     Dates: start: 20090731, end: 20090731
  3. MORPHINE [Concomitant]
     Indication: PAIN
     Dates: start: 20090626
  4. VALIUM [Concomitant]
     Indication: ELEVATED MOOD
     Dates: start: 20090626
  5. ATRICAN [Concomitant]
     Indication: ELEVATED MOOD
     Dates: start: 20090626

REACTIONS (4)
  - BLOOD PRESSURE DECREASED [None]
  - BLOOD PRESSURE INCREASED [None]
  - EYE SWELLING [None]
  - RASH GENERALISED [None]
